FAERS Safety Report 9518691 (Version 1)
Quarter: 2013Q3

REPORT INFORMATION
  Report Type: Spontaneous
  Country: NZ (occurrence: NZ)
  Receive Date: 20130912
  Receipt Date: 20130912
  Transmission Date: 20140515
  Serious: Yes (Other)
  Sender: FDA-Public Use
  Company Number: PHHY2013NZ100265

PATIENT
  Age: 84 Year
  Sex: Male

DRUGS (4)
  1. DICLOFENAC [Suspect]
     Route: 048
  2. CARBIDOPA LEVODOPA [Concomitant]
     Route: 048
  3. DOXAZOSIN [Concomitant]
     Route: 048
  4. METRONIDAZOLE [Concomitant]
     Route: 048

REACTIONS (3)
  - Circulatory collapse [Unknown]
  - Duodenal ulcer [Unknown]
  - Melaena [Unknown]
